FAERS Safety Report 10012052 (Version 1)
Quarter: 2014Q1

REPORT INFORMATION
  Report Type: Spontaneous
  Country: US (occurrence: None)
  Receive Date: 20140312
  Receipt Date: 20140312
  Transmission Date: 20141002
  Serious: Yes (Hospitalization, Disabling)
  Sender: FDA-Public Use
  Company Number: FK201400788

PATIENT
  Age: 42 Year
  Sex: Female

DRUGS (4)
  1. CYTARABINE (MANUFACTURER UNKNOWN) (CYTARABINE) (CYTARABINE) [Suspect]
     Indication: T-CELL TYPE ACUTE LEUKAEMIA
     Route: 037
  2. METHOTREXATE (MANUFACTURER UNKNOWN) (METHOTREXATE) (METHOTREXATE) [Suspect]
     Indication: T-CELL TYPE ACUTE LEUKAEMIA
     Route: 037
  3. HYDROCORTISONE (HYDROCORTISONE) (HYDROCORTISONE) [Suspect]
     Indication: T-CELL TYPE ACUTE LEUKAEMIA
     Route: 037
  4. NELARABINE (NELARABINE) (NELARABINE) [Suspect]
     Indication: T-CELL TYPE ACUTE LEUKAEMIA

REACTIONS (1)
  - Myelopathy [None]
